FAERS Safety Report 4826327-7 (Version None)
Quarter: 2005Q4

REPORT INFORMATION
  Report Type: 
  Country: None (occurrence: None)
  Receive Date: 20051109
  Receipt Date: 20051104
  Transmission Date: 20060501
  Serious: Yes (Hospitalization)
  Sender: FDA-Public Use
  Company Number: B01200502172

PATIENT
  Age: 65 Year
  Sex: Male
  Weight: 120 kg

DRUGS (7)
  1. CLOPIDOGREL BISULFATE [Suspect]
     Indication: CARDIOVASCULAR EVENT PROPHYLAXIS
     Dosage: 75 MG QD - ORAL
     Route: 048
     Dates: start: 20030122, end: 20050828
  2. ACETYLSALICYLIC ACID [Concomitant]
  3. METOPROLOL [Concomitant]
  4. SULINDAC [Concomitant]
  5. ROSIGLITAZONE MALEATE [Concomitant]
  6. HYDROXYCHLOROQUINE SULFATE [Concomitant]
  7. ERLOTINIB [Concomitant]

REACTIONS (17)
  - ANAEMIA [None]
  - ASTHENIA [None]
  - CONFUSIONAL STATE [None]
  - DEPRESSION [None]
  - DIARRHOEA [None]
  - DUODENAL ULCER [None]
  - FACE INJURY [None]
  - FALL [None]
  - GASTROINTESTINAL HAEMORRHAGE [None]
  - HAEMATOCHEZIA [None]
  - HAEMORRHAGE [None]
  - INCONTINENCE [None]
  - LIMB INJURY [None]
  - METASTASES TO CENTRAL NERVOUS SYSTEM [None]
  - METASTASES TO LUNG [None]
  - NON-SMALL CELL LUNG CANCER [None]
  - SYNCOPE [None]
